FAERS Safety Report 8536806 (Version 2)
Quarter: 2012Q4

REPORT INFORMATION
  Report Type: Spontaneous
  Country: US (occurrence: None)
  Receive Date: 20080710
  Receipt Date: 20120424
  Transmission Date: 20130627
  Serious: Yes (Other)
  Sender: FDA-Public Use
  Company Number: PHEH2008US04324

PATIENT
  Age: 27 Year
  Sex: Female
  Weight: 160.5 kg

DRUGS (7)
  1. LOTENSIN HCT [Suspect]
  2. LOTENSIN [Suspect]
     Dates: end: 20031123
  3. ALDOMET [Suspect]
     Dates: end: 20040723
  4. ALDOMET [Suspect]
     Dates: start: 200510
  5. HYDROCHLOROTHIAZIDE (HYDROCHLOROTHIAZIDE) [Concomitant]
  6. CLARITIN (LORATADINE) [Concomitant]
  7. TYLENOL (PARACETAMOL) [Concomitant]

REACTIONS (3)
  - Abortion spontaneous [None]
  - Maternal exposure during pregnancy [None]
  - Evacuation of retained products of conception [None]
